FAERS Safety Report 7822265-6 (Version None)
Quarter: 2011Q4

REPORT INFORMATION
  Report Type: 
  Country: None (occurrence: None)
  Receive Date: 20111018
  Receipt Date: 20110224
  Transmission Date: 20120403
  Serious: No
  Sender: FDA-Public Use
  Company Number: US-ASTRAZENECA-2011SE10826

PATIENT
  Age: 53 Year
  Sex: Male

DRUGS (2)
  1. SYMBICORT [Suspect]
     Indication: CHRONIC OBSTRUCTIVE PULMONARY DISEASE
     Dosage: 16/4.5MCG 1 PUFF TWO TIMES A DAY
     Route: 055
  2. NEXIUM [Concomitant]

REACTIONS (2)
  - RESPIRATORY TRACT INFECTION [None]
  - DRUG DOSE OMISSION [None]
